FAERS Safety Report 6978109-8 (Version None)
Quarter: 2010Q3

REPORT INFORMATION
  Report Type: 
  Country: None (occurrence: None)
  Receive Date: 20100913
  Receipt Date: 20100907
  Transmission Date: 20110219
  Serious: Yes (Death)
  Sender: FDA-Public Use
  Company Number: US-JNJFOC-20060902249

PATIENT
  Age: 30 Year
  Sex: Male

DRUGS (5)
  1. IBUPROFEN [Suspect]
     Indication: SUICIDE ATTEMPT
     Route: 048
  2. CYCLOBENZAPRINE [Suspect]
     Indication: SUICIDE ATTEMPT
     Route: 048
  3. METHADONE HCL [Suspect]
     Indication: SUICIDE ATTEMPT
     Route: 048
  4. VICODIN [Suspect]
     Indication: SUICIDE ATTEMPT
     Route: 048
  5. UNKNOWN DRUG [Concomitant]
     Indication: SUICIDE ATTEMPT
     Route: 048

REACTIONS (2)
  - COMPLETED SUICIDE [None]
  - MULTIPLE DRUG OVERDOSE INTENTIONAL [None]
